FAERS Safety Report 7693273 (Version 2)
Quarter: 2013Q4

REPORT INFORMATION
  Report Type: Report from Study
  Country: FR (occurrence: FR)
  Receive Date: 20101206
  Receipt Date: 20131222
  Transmission Date: 20140711
  Serious: Yes (Hospitalization)
  Sender: FDA-Public Use
  Company Number: PHHO2010FR18080

PATIENT
  Sex: 0

DRUGS (3)
  1. RAD 666 / RAD 001A [Suspect]
     Indication: HEART TRANSPLANT
     Dosage: 1.5
     Route: 048
     Dates: start: 20090821
  2. NEORAL [Suspect]
     Indication: HEART TRANSPLANT
     Dosage: 20
     Route: 048
     Dates: start: 20090731
  3. PREDNISOLONE [Suspect]
     Indication: HEART TRANSPLANT
     Dosage: 5
     Route: 048
     Dates: start: 19871010

REACTIONS (3)
  - Hypernatraemia [Recovered/Resolved]
  - Fluid retention [Recovered/Resolved]
  - Hypertension [Recovered/Resolved]
